FAERS Safety Report 15784451 (Version 1)
Quarter: 2019Q1

REPORT INFORMATION
  Report Type: Spontaneous
  Country: DE (occurrence: DE)
  Receive Date: 20190103
  Receipt Date: 20190103
  Transmission Date: 20190417
  Serious: Yes (Other)
  Sender: FDA-Public Use
  Company Number: DE-ROCHE-2238914

PATIENT

DRUGS (1)
  1. MABTHERA [Suspect]
     Active Substance: RITUXIMAB
     Indication: PRODUCT USED FOR UNKNOWN INDICATION
     Route: 058

REACTIONS (5)
  - Abdominal neoplasm [Unknown]
  - General physical health deterioration [Unknown]
  - Weight decreased [Unknown]
  - Pneumonia aspiration [Unknown]
  - Non-Hodgkin^s lymphoma [Unknown]
